FAERS Safety Report 11121746 (Version 2)
Quarter: 2015Q2

REPORT INFORMATION
  Report Type: Spontaneous
  Country: PE (occurrence: PE)
  Receive Date: 20150519
  Receipt Date: 20150528
  Transmission Date: 20150821
  Serious: Yes (Other)
  Sender: FDA-Public Use
  Company Number: PE-PFIZER INC-2015163360

PATIENT
  Age: 84 Year
  Sex: Female

DRUGS (3)
  1. COSOPT [Concomitant]
     Active Substance: DORZOLAMIDE HYDROCHLORIDE\TIMOLOL MALEATE
     Indication: GLAUCOMA
     Dosage: 2 GTT IN THE RIGHT EYE, DAILY
     Route: 047
  2. ARTIFICIAL TEARS /00445101/ [Concomitant]
     Dosage: UNK
  3. XALATAN [Suspect]
     Active Substance: LATANOPROST
     Indication: GLAUCOMA
     Dosage: 1 DROP IN THE LEFT EYE AT NIGHT, DAILY
     Route: 047
     Dates: start: 2003

REACTIONS (3)
  - Blindness [Unknown]
  - Glaucoma [Recovered/Resolved with Sequelae]
  - Eye disorder [Unknown]
